FAERS Safety Report 15900551 (Version 3)
Quarter: 2019Q1

REPORT INFORMATION
  Report Type: Spontaneous
  Country: CA (occurrence: CA)
  Receive Date: 20190201
  Receipt Date: 20190312
  Transmission Date: 20190417
  Serious: Yes (Hospitalization, Other)
  Sender: FDA-Public Use
  Company Number: CA-PFIZER INC-2019017339

PATIENT
  Age: 25 Year
  Sex: Male

DRUGS (2)
  1. XELJANZ [Suspect]
     Active Substance: TOFACITINIB CITRATE
     Dosage: 10 MG, 2X/DAY
     Route: 048
     Dates: end: 201901
  2. XELJANZ [Suspect]
     Active Substance: TOFACITINIB CITRATE
     Indication: COLITIS ULCERATIVE
     Dosage: 10 MG, 2X/DAY
     Route: 048
     Dates: start: 20181226, end: 201812

REACTIONS (9)
  - Injection site infection [Recovering/Resolving]
  - Pneumonia [Recovering/Resolving]
  - Clostridium difficile infection [Recovered/Resolved]
  - Drug ineffective [Unknown]
  - Haemoglobin decreased [Unknown]
  - Sepsis [Recovered/Resolved]
  - Staphylococcal sepsis [Recovered/Resolved]
  - Thrombosis [Unknown]
  - Platelet count increased [Unknown]

NARRATIVE: CASE EVENT DATE: 20181227
